FAERS Safety Report 12546845 (Version 1)
Quarter: 2016Q3

REPORT INFORMATION
  Report Type: Spontaneous
  Country: FR (occurrence: FR)
  Receive Date: 20160711
  Receipt Date: 20160711
  Transmission Date: 20161109
  Serious: Yes (Life-Threatening, Hospitalization, Other)
  Sender: FDA-Public Use
  Company Number: FR-ELI_LILLY_AND_COMPANY-FR201607001668

PATIENT
  Sex: Female

DRUGS (11)
  1. ZYPREXA [Suspect]
     Active Substance: OLANZAPINE
     Dosage: 1050 MG, SINGLE
     Route: 048
     Dates: start: 20160511, end: 20160511
  2. LYSANXIA [Suspect]
     Active Substance: PRAZEPAM
     Dosage: 1440 MG, SINGLE
     Route: 048
     Dates: start: 20160511, end: 20160511
  3. ABILIFY [Suspect]
     Active Substance: ARIPIPRAZOLE
     Dosage: 10 MG, UNKNOWN
     Route: 048
     Dates: start: 20160511, end: 20160511
  4. ZOPICLONE [Suspect]
     Active Substance: ZOPICLONE
     Indication: PRODUCT USED FOR UNKNOWN INDICATION
     Dosage: UNK, UNKNOWN
     Route: 065
  5. LYSANXIA [Suspect]
     Active Substance: PRAZEPAM
     Indication: PRODUCT USED FOR UNKNOWN INDICATION
     Dosage: UNK, UNKNOWN
     Route: 065
  6. ZYPREXA [Suspect]
     Active Substance: OLANZAPINE
     Indication: PRODUCT USED FOR UNKNOWN INDICATION
     Dosage: UNK, UNKNOWN
     Route: 065
  7. ZYPREXA [Suspect]
     Active Substance: OLANZAPINE
     Dosage: 1350 MG, SINGLE
     Route: 048
     Dates: start: 20160511, end: 20160511
  8. SEROPLEX [Suspect]
     Active Substance: ESCITALOPRAM OXALATE
     Indication: PRODUCT USED FOR UNKNOWN INDICATION
     Dosage: UNK, UNKNOWN
     Route: 065
  9. SEROPLEX [Suspect]
     Active Substance: ESCITALOPRAM OXALATE
     Dosage: 140 MG, SINGLE
     Route: 048
     Dates: start: 20160511, end: 20160511
  10. ABILIFY [Suspect]
     Active Substance: ARIPIPRAZOLE
     Indication: PRODUCT USED FOR UNKNOWN INDICATION
     Dosage: UNK, UNKNOWN
     Route: 048
  11. ZOPICLONE [Suspect]
     Active Substance: ZOPICLONE
     Dosage: 210 MG, SINGLE
     Route: 048
     Dates: start: 20160511, end: 20160511

REACTIONS (14)
  - Body temperature decreased [Unknown]
  - Hypotonia [Recovered/Resolved]
  - Pneumonia aspiration [Unknown]
  - Hypotension [Unknown]
  - Benzodiazepine drug level [Unknown]
  - Electrocardiogram QT prolonged [Unknown]
  - Miosis [Unknown]
  - Confusional state [Recovered/Resolved]
  - Agitation [Recovered/Resolved]
  - Coma [Recovered/Resolved]
  - Intentional overdose [Unknown]
  - Antipsychotic drug level above therapeutic [Unknown]
  - Respiratory rate increased [Unknown]
  - Loss of consciousness [Unknown]
